FAERS Safety Report 8452486-3 (Version None)
Quarter: 2012Q2

REPORT INFORMATION
  Report Type: 
  Country: None (occurrence: None)
  Receive Date: 20120620
  Receipt Date: 20120614
  Transmission Date: 20120825
  Serious: Yes (Other)
  Sender: FDA-Public Use
  Company Number: PHEH2012US004770

PATIENT
  Sex: Male

DRUGS (7)
  1. AFINITOR [Suspect]
     Indication: TUBEROUS SCLEROSIS
     Route: 048
     Dates: start: 20120303
  2. RISPERDAL [Concomitant]
  3. AFINITOR [Suspect]
     Dosage: 30 MG, WEEKLY
  4. AFINITOR [Suspect]
     Dosage: 40 MG, QW
     Route: 048
  5. LAMICTAL [Concomitant]
  6. AFINITOR [Suspect]
     Indication: ASTROCYTOMA, LOW GRADE
     Route: 048
     Dates: start: 20100501
  7. FELBATOL [Concomitant]

REACTIONS (5)
  - ASTHENIA [None]
  - ANGIOFIBROMA [None]
  - PULMONARY FIBROSIS [None]
  - PNEUMONIA [None]
  - SKIN INFECTION [None]
